FAERS Safety Report 4402203-9 (Version None)
Quarter: 2004Q3

REPORT INFORMATION
  Report Type: 
  Country: None (occurrence: None)
  Receive Date: 20040716
  Receipt Date: 20040702
  Transmission Date: 20050211
  Serious: Yes (Hospitalization)
  Sender: FDA-Public Use
  Company Number: A01200402056

PATIENT
  Age: 68 Year
  Sex: Female

DRUGS (8)
  1. PLAQUENIL [Suspect]
     Indication: SYSTEMIC LUPUS ERYTHEMATOSUS
     Dosage: 400 MG OD/200 MG
     Dates: end: 20040201
  2. PLAQUENIL [Suspect]
     Indication: SYSTEMIC LUPUS ERYTHEMATOSUS
     Dosage: 400 MG OD/200 MG
     Dates: start: 19990101
  3. ATENOLOL [Concomitant]
  4. CO-DYDRAMOL [Concomitant]
  5. RISEDRONATE (RISEDRONATE SODIUM) [Concomitant]
  6. RAMIPRIL [Concomitant]
  7. OMEPRAZOLE [Concomitant]
  8. PREDNISOLONE E/C (PREDNISOLONE) [Concomitant]

REACTIONS (10)
  - ATRIAL FIBRILLATION [None]
  - CARDIAC FLUTTER [None]
  - CONDITION AGGRAVATED [None]
  - DRUG WITHDRAWAL SYNDROME [None]
  - DYSPNOEA [None]
  - FEELING ABNORMAL [None]
  - INFLUENZA [None]
  - MITRAL VALVE DISEASE [None]
  - PALPITATIONS [None]
  - PLATELET COUNT DECREASED [None]
